FAERS Safety Report 4892733-8 (Version None)
Quarter: 2006Q1

REPORT INFORMATION
  Report Type: 
  Country: None (occurrence: None)
  Receive Date: 20060125
  Receipt Date: 20060125
  Transmission Date: 20060701
  Serious: Yes (Life-Threatening, Hospitalization)
  Sender: FDA-Public Use
  Company Number: None

PATIENT
  Sex: Female
  Weight: 118.2 kg

DRUGS (1)
  1. ACETAMINOPHEN [Suspect]
     Indication: MIGRAINE
     Dosage: 6-7.5MG PO
     Route: 048
     Dates: start: 20051021, end: 20051022

REACTIONS (7)
  - ABDOMINAL PAIN [None]
  - ALANINE AMINOTRANSFERASE INCREASED [None]
  - ANALGESIC DRUG LEVEL INCREASED [None]
  - ASPARTATE AMINOTRANSFERASE INCREASED [None]
  - NAUSEA [None]
  - OVERDOSE [None]
  - VOMITING [None]
